FAERS Safety Report 12899002 (Version 2)
Quarter: 2016Q4

REPORT INFORMATION
  Report Type: Spontaneous
  Country: US (occurrence: US)
  Receive Date: 20161101
  Receipt Date: 20161107
  Transmission Date: 20170207
  Serious: No
  Sender: FDA-Public Use
  Company Number: US-TEVA-706414USA

PATIENT
  Sex: Female

DRUGS (2)
  1. GRANIX [Suspect]
     Active Substance: TBO-FILGRASTIM
     Route: 065
  2. TEMOZOLOMIDE. [Suspect]
     Active Substance: TEMOZOLOMIDE
     Route: 065

REACTIONS (1)
  - Drug ineffective [Unknown]
